FAERS Safety Report 12919572 (Version 1)
Quarter: 2016Q4

REPORT INFORMATION
  Report Type: Report from Study
  Country: US (occurrence: US)
  Receive Date: 20161108
  Receipt Date: 20161108
  Transmission Date: 20170207
  Serious: Yes (Other)
  Sender: FDA-Public Use
  Company Number: US-ROCHE-1848442

PATIENT

DRUGS (1)
  1. PIRFENIDONE [Suspect]
     Active Substance: PIRFENIDONE
     Indication: DIABETIC NEPHROPATHY
     Dosage: DAILY DOSE: 1200 MG
     Route: 048

REACTIONS (1)
  - Cardiac failure [Unknown]
